FAERS Safety Report 4585099-4 (Version None)
Quarter: 2005Q1

REPORT INFORMATION
  Report Type: 
  Country: None (occurrence: None)
  Receive Date: 20050217
  Receipt Date: 20041229
  Transmission Date: 20050727
  Serious: No
  Sender: FDA-Public Use
  Company Number: US-GLAXOSMITHKLINE-A0538829A

PATIENT
  Age: 32 Year
  Sex: Female

DRUGS (5)
  1. WELLBUTRIN XL [Suspect]
     Indication: ANXIETY
     Dosage: 300MG PER DAY
     Route: 048
     Dates: start: 20041217
  2. METHOTREXATE [Concomitant]
  3. FOLIC ACID [Concomitant]
  4. PLAQUENIL [Concomitant]
  5. NAPROXEN [Concomitant]

REACTIONS (6)
  - DIARRHOEA [None]
  - DIZZINESS [None]
  - NAUSEA [None]
  - PARAESTHESIA [None]
  - PARAESTHESIA ORAL [None]
  - VOMITING [None]
